FAERS Safety Report 5070897-3 (Version None)
Quarter: 2006Q3

REPORT INFORMATION
  Report Type: 
  Country: None (occurrence: None)
  Receive Date: 20060804
  Receipt Date: 20060728
  Transmission Date: 20061208
  Serious: Yes (Hospitalization)
  Sender: FDA-Public Use
  Company Number: DE-JNJFOC-20060800094

PATIENT
  Sex: Female
  Weight: 74 kg

DRUGS (4)
  1. REMINYL [Suspect]
     Indication: DEMENTIA ALZHEIMER'S TYPE
     Route: 048
     Dates: start: 20060420, end: 20060608
  2. BELOK ZOK [Concomitant]
     Indication: HYPERTENSION
     Route: 048
  3. L-THYROXIN [Concomitant]
     Indication: HYPOTHYROIDISM
     Route: 048
  4. FALITHROM [Concomitant]
     Indication: ATRIAL FIBRILLATION
     Dosage: AS REQUIRED
     Route: 048

REACTIONS (1)
  - CHOLINERGIC SYNDROME [None]
